FAERS Safety Report 24647438 (Version 1)
Quarter: 2024Q4

REPORT INFORMATION
  Report Type: Spontaneous
  Country: CN (occurrence: CN)
  Receive Date: 20241121
  Receipt Date: 20241121
  Transmission Date: 20250115
  Serious: Yes (Other)
  Sender: BAYER HEALTHCARE LLC
  Company Number: CN-BAYER-2024A165930

PATIENT
  Age: 29 Year
  Sex: Male

DRUGS (1)
  1. LORATADINE [Suspect]
     Active Substance: LORATADINE
     Indication: Rash pruritic
     Dosage: 1 DF, ONCE
     Route: 048
     Dates: start: 20241118, end: 20241118

REACTIONS (3)
  - Syncope [None]
  - Nausea [None]
  - Vomiting [Recovering/Resolving]

NARRATIVE: CASE EVENT DATE: 20241118
